FAERS Safety Report 8377772-7 (Version None)
Quarter: 2012Q2

REPORT INFORMATION
  Report Type: 
  Country: None (occurrence: None)
  Receive Date: 20120522
  Receipt Date: 20120517
  Transmission Date: 20120825
  Serious: Yes (Life-Threatening, Hospitalization, Other)
  Sender: FDA-Public Use
  Company Number: US-BAYER-2011-036827

PATIENT
  Age: 66 Year
  Sex: Female

DRUGS (8)
  1. ASPIRIN [Concomitant]
  2. SYNTHROID [Concomitant]
  3. HYDROCHLOROTHIAZIDE [Concomitant]
  4. AVELOX [Suspect]
     Dosage: UNK, BID
     Route: 048
     Dates: start: 20110101
  5. TELMISARTAN [Concomitant]
  6. FLUTICASONE FUROATE [Concomitant]
  7. AVELOX [Suspect]
     Indication: SINUSITIS
     Dosage: UNK
  8. OMEPRAZOLE [Concomitant]

REACTIONS (7)
  - LETHARGY [None]
  - THROMBOCYTOPENIA [None]
  - THROMBOTIC THROMBOCYTOPENIC PURPURA [None]
  - FATIGUE [None]
  - APHASIA [None]
  - DYSPNOEA EXERTIONAL [None]
  - ANAEMIA [None]
